FAERS Safety Report 15225842 (Version 1)
Quarter: 2018Q3

REPORT INFORMATION
  Report Type: Spontaneous
  Country: US (occurrence: US)
  Receive Date: 20180801
  Receipt Date: 20180801
  Transmission Date: 20181010
  Serious: No
  Sender: FDA-Public Use
  Company Number: US-PFIZER INC-2018305314

PATIENT
  Age: 78 Year
  Sex: Female
  Weight: 96.15 kg

DRUGS (4)
  1. COUMADIN [Concomitant]
     Active Substance: WARFARIN SODIUM
     Indication: PULMONARY EMBOLISM
     Dosage: 5 MG, UNK (4 TIMES A WEEK)
     Route: 048
     Dates: start: 20140622
  2. AMLODIPINE BENAZEPRIL [Concomitant]
     Active Substance: AMLODIPINE BESYLATE\BENAZEPRIL HYDROCHLORIDE
     Indication: CARDIAC DISORDER
     Dosage: UNK, 1X/DAY (AMLODIPINE BESILATE?10 MG, BENAZEPRIL HYDROCHLORIDE?20 MG)
     Route: 048
  3. NICOTROL [Suspect]
     Active Substance: NICOTINE
     Indication: SMOKING CESSATION THERAPY
     Dosage: 4 MG, UNK (1 CARTRIDGE)
     Dates: start: 20180726, end: 20180726
  4. COUMADIN [Concomitant]
     Active Substance: WARFARIN SODIUM
     Dosage: 2.5 MG, UNK  (3 TIMES A WEEK)
     Route: 048
     Dates: start: 20140622

REACTIONS (1)
  - Drug ineffective [Not Recovered/Not Resolved]

NARRATIVE: CASE EVENT DATE: 20180726
